FAERS Safety Report 8564969-6 (Version None)
Quarter: 2012Q3

REPORT INFORMATION
  Report Type: 
  Country: None (occurrence: None)
  Receive Date: 20120803
  Receipt Date: 20120725
  Transmission Date: 20120928
  Serious: Yes (Other)
  Sender: FDA-Public Use
  Company Number: JP-VERTEX PHARMACEUTICALS INC.-AE-2012-011252

PATIENT
  Sex: Male

DRUGS (2)
  1. TELAVIC (TELAPREVIR) [Suspect]
     Route: 048
     Dates: end: 20120101
  2. REBETOL [Concomitant]
     Route: 048

REACTIONS (7)
  - ECZEMA [None]
  - DIZZINESS [None]
  - PYREXIA [None]
  - RETINOPATHY [None]
  - DYSGEUSIA [None]
  - HAEMORRHAGE [None]
  - DECREASED APPETITE [None]
